FAERS Safety Report 12282737 (Version 1)
Quarter: 2016Q2

REPORT INFORMATION
  Report Type: Spontaneous
  Country: CN (occurrence: CN)
  Receive Date: 20160419
  Receipt Date: 20160419
  Transmission Date: 20160815
  Serious: Yes (Death)
  Sender: FDA-Public Use
  Company Number: CN-PFIZER INC-2016222686

PATIENT
  Age: 49 Year
  Sex: Male
  Weight: 60 kg

DRUGS (5)
  1. DEXAMETHASONE SODIUM PHOSPHATE. [Suspect]
     Active Substance: DEXAMETHASONE SODIUM PHOSPHATE
     Indication: CRANIOCEREBRAL INJURY
     Dosage: 10 MG, 2X/DAY
     Route: 042
     Dates: start: 20151010, end: 20151013
  2. BI CUN [Suspect]
     Active Substance: EDARAVONE
     Indication: CEREBRAL INFARCTION
     Dosage: 1 DF, 2X/DAY
     Route: 041
     Dates: start: 20151004, end: 20151015
  3. AO XI KANG [Concomitant]
     Indication: HYPERCHLORHYDRIA
     Dosage: 40 MG, 2X/DAY
     Route: 041
     Dates: start: 20151004, end: 20151010
  4. AMINOMETHYLBENZOIC ACID [Concomitant]
     Indication: PROCOAGULANT THERAPY
     Dosage: 0.2 G, 1X/DAY
     Route: 041
     Dates: start: 20151004, end: 20151008
  5. METHYLPREDNISOLONE SODIUM SUCCINATE. [Suspect]
     Active Substance: METHYLPREDNISOLONE SODIUM SUCCINATE
     Indication: CRANIOCEREBRAL INJURY
     Dosage: 1000 MG, 1X/DAY
     Route: 041
     Dates: start: 20151008, end: 20151010

REACTIONS (2)
  - Lung infection [Fatal]
  - Platelet count decreased [Not Recovered/Not Resolved]

NARRATIVE: CASE EVENT DATE: 20151012
